FAERS Safety Report 13174258 (Version 1)
Quarter: 2017Q1

REPORT INFORMATION
  Report Type: Spontaneous
  Country: AR (occurrence: AR)
  Receive Date: 20170131
  Receipt Date: 20170131
  Transmission Date: 20170428
  Serious: Yes (Hospitalization)
  Sender: FDA-Public Use
  Company Number: AR-SUNOVION-2017SUN000353

PATIENT
  Age: 55 Year
  Sex: Male

DRUGS (1)
  1. INDACATEROL AND GLYCOPYRROLATE [Suspect]
     Active Substance: GLYCOPYRROLATE\INDACATEROL MALEATE
     Indication: CHRONIC OBSTRUCTIVE PULMONARY DISEASE
     Dosage: 1 DF, QD
     Route: 065
     Dates: start: 20161006, end: 20161112

REACTIONS (10)
  - Atrial fibrillation [Recovering/Resolving]
  - Drug ineffective [Unknown]
  - Hyperthyroidism [Recovering/Resolving]
  - Palpitations [Recovering/Resolving]
  - Agitation [Unknown]
  - Fatigue [Recovering/Resolving]
  - Discomfort [Recovering/Resolving]
  - Malaise [Unknown]
  - Dyspnoea [Recovering/Resolving]
  - Sinus tachycardia [Recovering/Resolving]

NARRATIVE: CASE EVENT DATE: 201610
